FAERS Safety Report 9288046 (Version 1)
Quarter: 2013Q2

REPORT INFORMATION
  Report Type: Spontaneous
  Country: IT (occurrence: None)
  Receive Date: 20130509
  Receipt Date: 20130509
  Transmission Date: 20140414
  Serious: Yes (Hospitalization)
  Sender: FDA-Public Use
  Company Number: INT_00250_2013

PATIENT
  Age: 64 Year
  Sex: 0

DRUGS (2)
  1. CEFTAZIDIME [Suspect]
     Indication: PRODUCT USED FOR UNKNOWN INDICATION
  2. ENOXAPARIN [Concomitant]

REACTIONS (1)
  - Autoimmune thrombocytopenia [None]
